FAERS Safety Report 11266468 (Version 2)
Quarter: 2015Q3

REPORT INFORMATION
  Report Type: Spontaneous
  Country: DE (occurrence: DE)
  Receive Date: 20150713
  Receipt Date: 20150722
  Transmission Date: 20151125
  Serious: Yes (Death, Other)
  Sender: FDA-Public Use
  Company Number: DE-PFIZER INC-2015228972

PATIENT
  Age: 59 Year
  Sex: Female

DRUGS (6)
  1. PHENYTOIN. [Suspect]
     Active Substance: PHENYTOIN
     Indication: EPILEPSY
     Dosage: 100 MG, 3X/DAY
  2. ETHOSUXIMIDE. [Concomitant]
     Active Substance: ETHOSUXIMIDE
     Indication: GENERALISED TONIC-CLONIC SEIZURE
     Dosage: 250 MG, 3X/DAY
  3. PHENYTOIN. [Suspect]
     Active Substance: PHENYTOIN
     Indication: GENERALISED TONIC-CLONIC SEIZURE
     Dosage: 3 X 200 MG
  4. VALPROATE [Concomitant]
     Active Substance: VALPROATE SODIUM
     Indication: GENERALISED TONIC-CLONIC SEIZURE
     Dosage: 300 MG, 3X/DAY
  5. BIPERIDEN [Concomitant]
     Active Substance: BIPERIDEN
     Indication: GENERALISED TONIC-CLONIC SEIZURE
     Dosage: 4 MG, 1X/DAY
  6. CARBAMAZEPINE. [Concomitant]
     Active Substance: CARBAMAZEPINE
     Indication: EPILEPSY
     Dosage: UNK

REACTIONS (8)
  - Cerebellar syndrome [Unknown]
  - Pulmonary haemorrhage [Unknown]
  - Death [Fatal]
  - Cerebellar atrophy [Unknown]
  - Pulmonary oedema [Unknown]
  - Weight decreased [Unknown]
  - Drug ineffective [Unknown]
  - Anticonvulsant drug level increased [Unknown]
